FAERS Safety Report 7316166-X (Version None)
Quarter: 2011Q1

REPORT INFORMATION
  Report Type: 
  Country: None (occurrence: None)
  Receive Date: 20110225
  Receipt Date: 20110217
  Transmission Date: 20110831
  Serious: Yes (Other)
  Sender: FDA-Public Use
  Company Number: US-CEPHALON-2011000808

PATIENT
  Age: 20 Year
  Sex: Male

DRUGS (2)
  1. ALCOHOL [Suspect]
     Route: 048
  2. NUVIGIL [Suspect]
     Route: 048

REACTIONS (1)
  - POISONING [None]
